FAERS Safety Report 12898372 (Version 1)
Quarter: 2016Q4

REPORT INFORMATION
  Report Type: Other
  Country: US (occurrence: US)
  Receive Date: 20161031
  Receipt Date: 20161031
  Transmission Date: 20170207
  Serious: Yes (Hospitalization, Other)
  Sender: FDA-Public Use
  Company Number: US-BELCHER PHARMACEUTICALS, LLC-2016VTS00240

PATIENT
  Age: 18 Year
  Sex: Female
  Weight: 49.89 kg

DRUGS (4)
  1. HYOSCYAMINE SULFATE. [Suspect]
     Active Substance: HYOSCYAMINE SULFATE
     Indication: INFLAMMATORY BOWEL DISEASE
  2. CONCERTA [Concomitant]
     Active Substance: METHYLPHENIDATE HYDROCHLORIDE
     Dosage: UNK
  3. FLUOXETINE [Concomitant]
     Active Substance: FLUOXETINE HYDROCHLORIDE
     Dosage: UNK
  4. HYOSCYAMINE SULFATE. [Suspect]
     Active Substance: HYOSCYAMINE SULFATE
     Indication: ABDOMINAL PAIN UPPER
     Dosage: 2 TABLETS/DAY BUT NOT EVERY DAY
     Route: 048
     Dates: start: 2016, end: 20160902

REACTIONS (9)
  - Gallbladder disorder [Recovered/Resolved]
  - Hallucination [Recovered/Resolved]
  - Disorientation [Recovered/Resolved]
  - Vision blurred [Recovered/Resolved]
  - Cholecystectomy [Unknown]
  - Abdominal pain upper [Unknown]
  - Gait disturbance [Recovered/Resolved]
  - Product use issue [None]
  - Dizziness [Recovered/Resolved]

NARRATIVE: CASE EVENT DATE: 201605
